FAERS Safety Report 12616852 (Version 1)
Quarter: 2016Q3

REPORT INFORMATION
  Report Type: Report from Study
  Country: JP (occurrence: JP)
  Receive Date: 20160802
  Receipt Date: 20160802
  Transmission Date: 20161109
  Serious: Yes (Hospitalization)
  Sender: FDA-Public Use
  Company Number: JP-ASTRAZENECA-2016SE82261

PATIENT
  Age: 70 Year
  Sex: Male

DRUGS (14)
  1. AMLODIN [Concomitant]
     Active Substance: AMLODIPINE BESYLATE
     Route: 065
     Dates: start: 20100313, end: 20141104
  2. MIKELAN [Concomitant]
     Active Substance: CARTEOLOL HYDROCHLORIDE
     Route: 047
     Dates: start: 20110818, end: 20110824
  3. CRESTOR [Suspect]
     Active Substance: ROSUVASTATIN CALCIUM
     Indication: HYPERCHOLESTEROLAEMIA
     Route: 048
     Dates: start: 20120618
  4. CRESTOR [Suspect]
     Active Substance: ROSUVASTATIN CALCIUM
     Indication: HYPERCHOLESTEROLAEMIA
     Route: 048
     Dates: start: 20110510, end: 20110728
  5. MEVALOTIN [Concomitant]
     Active Substance: PRAVASTATIN SODIUM
     Indication: HYPERCHOLESTEROLAEMIA
     Route: 065
     Dates: start: 20110729, end: 20110926
  6. RENIVACE [Concomitant]
     Active Substance: ENALAPRIL
     Route: 065
     Dates: start: 20091203, end: 20140628
  7. METHYCOBAL [Concomitant]
     Active Substance: METHYLCOBALAMIN
     Route: 048
     Dates: start: 20091203
  8. ACTOS [Concomitant]
     Active Substance: PIOGLITAZONE HYDROCHLORIDE
     Indication: DIABETES MELLITUS
     Route: 065
     Dates: start: 20100318, end: 20130415
  9. CEFZON [Concomitant]
     Active Substance: CEFDINIR
     Route: 048
     Dates: start: 20110818, end: 20110824
  10. TRUSOPT [Concomitant]
     Active Substance: DORZOLAMIDE HYDROCHLORIDE
     Route: 047
     Dates: start: 20110818, end: 20110824
  11. TAPROS [Concomitant]
     Active Substance: TAFLUPROST
     Route: 047
     Dates: start: 20110818, end: 20110824
  12. TARIVID [Concomitant]
     Active Substance: OFLOXACIN
     Route: 047
     Dates: start: 20110818, end: 20110824
  13. METGLUCO [Concomitant]
     Active Substance: METFORMIN HYDROCHLORIDE
     Indication: DIABETES MELLITUS
     Route: 065
     Dates: start: 20110510
  14. CRAVIT [Concomitant]
     Active Substance: LEVOFLOXACIN
     Route: 047
     Dates: start: 20110818, end: 20110824

REACTIONS (1)
  - Cataract [Recovering/Resolving]

NARRATIVE: CASE EVENT DATE: 20110824
